FAERS Safety Report 6265786-2 (Version None)
Quarter: 2009Q3

REPORT INFORMATION
  Report Type: 
  Country: None (occurrence: None)
  Receive Date: 20090713
  Receipt Date: 20090701
  Transmission Date: 20100115
  Serious: Yes (Congenital Anomaly)
  Sender: FDA-Public Use
  Company Number: A0679365A

PATIENT
  Sex: Female

DRUGS (5)
  1. PAROXETINE HCL [Suspect]
     Indication: DRUG USE FOR UNKNOWN INDICATION
     Route: 048
     Dates: start: 20050901, end: 20051001
  2. ENALAPRIL [Concomitant]
     Dosage: .8ML TWICE PER DAY
     Dates: start: 20060601
  3. ASPIRIN [Concomitant]
     Dosage: .5TAB PER DAY
     Dates: start: 20060601
  4. DIGOXIN [Concomitant]
     Dosage: .8ML TWICE PER DAY
     Dates: start: 20060601
  5. FUROSEMIDE [Concomitant]
     Dosage: .5ML TWICE PER DAY
     Dates: start: 20060601

REACTIONS (9)
  - ATRIAL SEPTAL DEFECT [None]
  - COARCTATION OF THE AORTA [None]
  - CONGENITAL ANOMALY [None]
  - DRUG EXPOSURE DURING PREGNANCY [None]
  - INTERRUPTION OF AORTIC ARCH [None]
  - LUNG DISORDER [None]
  - MULTIPLE CONGENITAL ABNORMALITIES [None]
  - PERSISTENT FOETAL CIRCULATION [None]
  - TRUNCUS ARTERIOSUS PERSISTENT [None]
